FAERS Safety Report 6038695-1 (Version None)
Quarter: 2009Q1

REPORT INFORMATION
  Report Type: 
  Country: None (occurrence: None)
  Receive Date: 20090115
  Receipt Date: 20081114
  Transmission Date: 20090719
  Serious: No
  Sender: FDA-Public Use
  Company Number: US-BAYER-200814417BCC

PATIENT
  Age: 3 Year
  Sex: Female
  Weight: 11 kg

DRUGS (2)
  1. ALEVE [Suspect]
     Route: 048
     Dates: start: 20081114
  2. ALBUTEROL [Concomitant]

REACTIONS (2)
  - ERYTHEMA [None]
  - FATIGUE [None]
